FAERS Safety Report 6538224-X (Version None)
Quarter: 2010Q1

REPORT INFORMATION
  Report Type: 
  Country: None (occurrence: None)
  Receive Date: 20100110
  Receipt Date: 20091224
  Transmission Date: 20100710
  Serious: Yes (Hospitalization)
  Sender: FDA-Public Use
  Company Number: TCI2009A05098

PATIENT
  Age: 83 Year
  Sex: Female

DRUGS (6)
  1. ACTOS [Suspect]
     Indication: DIABETES MELLITUS
     Dosage: 15 MG (15 MG, 1 IN 1 D) PER ORAL
     Route: 048
     Dates: start: 20091016, end: 20091021
  2. VOGLIBOSE [Concomitant]
  3. AMARYL [Concomitant]
  4. DIOVAN [Concomitant]
  5. EPADEL (ETHYL ICOSAPENTATE) [Concomitant]
  6. LIVALO (ITAVASTATIN CALCIUM) [Concomitant]

REACTIONS (6)
  - BLOOD IMMUNOGLOBULIN E INCREASED [None]
  - FIBRIN D DIMER INCREASED [None]
  - GLYCOSYLATED HAEMOGLOBIN INCREASED [None]
  - PLATELET COUNT DECREASED [None]
  - THROMBIN-ANTITHROMBIN III COMPLEX INCREASED [None]
  - THROMBOSIS [None]
